FAERS Safety Report 11066399 (Version 1)
Quarter: 2015Q2

REPORT INFORMATION
  Report Type: Spontaneous
  Country: BR (occurrence: None)
  Receive Date: 20150423
  Receipt Date: 20150423
  Transmission Date: 20150821
  Serious: Yes (Other)
  Sender: FDA-Public Use
  Company Number: 2015-11113

PATIENT
  Age: 72 Year
  Sex: Male
  Weight: 96 kg

DRUGS (1)
  1. EYLEA [Suspect]
     Active Substance: AFLIBERCEPT
     Indication: RETINAL DETACHMENT
     Dosage: HAD PERFORMED MORE THAN 10 INJECTIONS, IN BOTH EYES, INTRAOCULAR
     Route: 031

REACTIONS (3)
  - Eye haemorrhage [None]
  - Eye pain [None]
  - Off label use [None]

NARRATIVE: CASE EVENT DATE: 20140410
